FAERS Safety Report 25445824 (Version 4)
Quarter: 2025Q3

REPORT INFORMATION
  Report Type: Spontaneous
  Country: US (occurrence: US)
  Receive Date: 20250617
  Receipt Date: 20250702
  Transmission Date: 20251021
  Serious: Yes (Hospitalization)
  Sender: PACIRA
  Company Number: US-ORG100016242-2025000220

PATIENT
  Age: 49 Year
  Sex: Female

DRUGS (4)
  1. EXPAREL [Suspect]
     Active Substance: BUPIVACAINE
     Indication: Abdominoplasty
     Route: 050
     Dates: start: 20250527, end: 20250527
  2. MARCAINE [Suspect]
     Active Substance: BUPIVACAINE HYDROCHLORIDE
     Indication: Abdominoplasty
     Route: 050
     Dates: start: 20250527, end: 20250527
  3. EPINEPHRINE [Suspect]
     Active Substance: EPINEPHRINE
     Indication: Abdominoplasty
     Route: 050
     Dates: start: 20250527, end: 20250527
  4. Anesthesia medication [Concomitant]
     Indication: Anaesthesia
     Route: 042

REACTIONS (2)
  - Delayed recovery from anaesthesia [Unknown]
  - Labelled drug-drug interaction medication error [Unknown]

NARRATIVE: CASE EVENT DATE: 20250527
